FAERS Safety Report 19354069 (Version 2)
Quarter: 2021Q2

REPORT INFORMATION
  Report Type: Report from Study
  Country: MX (occurrence: MX)
  Receive Date: 20210531
  Receipt Date: 20210605
  Transmission Date: 20210717
  Serious: Yes (Life-Threatening, Hospitalization)
  Sender: FDA-Public Use
  Company Number: NVSC2021MX121341

PATIENT
  Age: 74 Year
  Sex: Male
  Weight: 73 kg

DRUGS (5)
  1. EXFORGE [Suspect]
     Active Substance: AMLODIPINE BESYLATE\VALSARTAN
     Dosage: 1 DF, Q12H
     Route: 048
  2. SINTROM [Concomitant]
     Active Substance: ACENOCOUMAROL
     Indication: ANTICOAGULANT THERAPY
     Dosage: 0.5 DF FOR 3 DAYS WEEKLY (STARTED 11 YEARS AGO)
     Route: 048
  3. SINTROM [Concomitant]
     Active Substance: ACENOCOUMAROL
     Dosage: 0.25 DF FOR 4 DAYS WEEKLY (STARTED 11 YEARS AGO))
     Route: 048
  4. EXFORGE [Suspect]
     Active Substance: AMLODIPINE BESYLATE\VALSARTAN
     Indication: HYPERTENSION
     Dosage: 1 DF, BID
     Route: 048
     Dates: start: 2009
  5. DILATREND [Concomitant]
     Active Substance: CARVEDILOL
     Indication: HYPERTENSION
     Dosage: 0.5 DF, Q12H (STARTED 11 YEARS AGO)
     Route: 048

REACTIONS (2)
  - Inappropriate schedule of product administration [Unknown]
  - Aortic stenosis [Recovered/Resolved]

NARRATIVE: CASE EVENT DATE: 201008
